FAERS Safety Report 9363021 (Version 1)
Quarter: 2013Q2

REPORT INFORMATION
  Report Type: Spontaneous
  Country: FR (occurrence: FR)
  Receive Date: 20130624
  Receipt Date: 20130624
  Transmission Date: 20140414
  Serious: Yes (Hospitalization)
  Sender: FDA-Public Use
  Company Number: FR-ROCHE-1239488

PATIENT
  Age: 56 Year
  Sex: Female

DRUGS (3)
  1. HERCEPTIN [Suspect]
     Indication: BREAST CANCER METASTATIC
     Dosage: 540 MG
     Route: 042
     Dates: start: 20130212, end: 20130212
  2. HERCEPTIN [Suspect]
     Route: 042
     Dates: start: 20130306
  3. DOCETAXEL [Suspect]
     Indication: BREAST CANCER METASTATIC
     Dosage: 118 MG
     Route: 042
     Dates: start: 20130212, end: 20130212

REACTIONS (3)
  - Toxic skin eruption [Recovering/Resolving]
  - Diarrhoea [Recovered/Resolved]
  - Neutropenia [Recovered/Resolved]
